FAERS Safety Report 5260325-7 (Version None)
Quarter: 2007Q1

REPORT INFORMATION
  Report Type: 
  Country: None (occurrence: None)
  Receive Date: 20070309
  Receipt Date: 20060712
  Transmission Date: 20070707
  Serious: No
  Sender: FDA-Public Use
  Company Number: US-GLAXOSMITHKLINE-A0611735A

PATIENT
  Age: 69 Year
  Sex: Female

DRUGS (3)
  1. NICORETTE (MINT) [Suspect]
  2. NICORETTE [Suspect]
  3. NICORETTE (MINT) [Suspect]

REACTIONS (3)
  - DIARRHOEA [None]
  - DRUG INEFFECTIVE [None]
  - INTENTIONAL DRUG MISUSE [None]
